FAERS Safety Report 18244168 (Version 1)
Quarter: 2020Q3

REPORT INFORMATION
  Report Type: Report from Study
  Country: JP (occurrence: JP)
  Receive Date: 20200909
  Receipt Date: 20200909
  Transmission Date: 20201103
  Serious: Yes (Hospitalization)
  Sender: FDA-Public Use
  Company Number: JP-BAXTER-2020BAX018329

PATIENT
  Age: 44 Year
  Sex: Female

DRUGS (12)
  1. PEGFILGRASTIM GENETICAL RECOMBINATION [Concomitant]
     Route: 058
     Dates: start: 20200110, end: 20200110
  2. EPIRUBICIN HYDROCHLORIDE. [Concomitant]
     Active Substance: EPIRUBICIN HYDROCHLORIDE
     Indication: PRODUCT USED FOR UNKNOWN INDICATION
     Route: 042
  3. ATEZOLIZUMAB GENETICAL RECOMBINATION [Concomitant]
     Indication: BREAST CANCER
     Dosage: FIRST CYCLE
     Route: 042
     Dates: start: 20190920
  4. ADRIACIN [Concomitant]
     Active Substance: DOXORUBICIN HYDROCHLORIDE
     Indication: BREAST CANCER
     Route: 065
     Dates: start: 20200107
  5. DOXIL [Suspect]
     Active Substance: DOXORUBICIN HYDROCHLORIDE
     Indication: BREAST CANCER
     Dosage: FIRST CYCLE
     Route: 042
     Dates: start: 20191220, end: 20191220
  6. LOXOPROFEN SODIUM HYDRATE [Concomitant]
     Active Substance: LOXOPROFEN SODIUM DIHYDRATE
     Indication: PRODUCT USED FOR UNKNOWN INDICATION
     Route: 065
     Dates: start: 20191228, end: 20200305
  7. DOXIL [Suspect]
     Active Substance: DOXORUBICIN HYDROCHLORIDE
     Dosage: SECOND CYCLE
     Route: 042
     Dates: start: 20200107, end: 20200107
  8. ATEZOLIZUMAB GENETICAL RECOMBINATION [Concomitant]
     Dosage: SECOND CYCLE
     Route: 042
     Dates: start: 20200107, end: 20200107
  9. PEGFILGRASTIM GENETICAL RECOMBINATION [Concomitant]
     Indication: PRODUCT USED FOR UNKNOWN INDICATION
     Route: 058
     Dates: start: 20191223, end: 20191223
  10. ENDOXAN 1G [Suspect]
     Active Substance: CYCLOPHOSPHAMIDE
     Indication: BREAST CANCER
     Dosage: FIRST CYCLE
     Route: 042
     Dates: start: 20191220, end: 20191220
  11. ENDOXAN 1G [Suspect]
     Active Substance: CYCLOPHOSPHAMIDE
     Dosage: SECOND CYCLE
     Route: 042
     Dates: start: 20200107, end: 20200107
  12. PACLITAXEL. [Concomitant]
     Active Substance: PACLITAXEL
     Indication: BREAST CANCER
     Route: 042
     Dates: start: 20190920, end: 20191213

REACTIONS (1)
  - Herpes zoster [Recovered/Resolved]

NARRATIVE: CASE EVENT DATE: 20200119
